FAERS Safety Report 13406028 (Version 1)
Quarter: 2017Q2

REPORT INFORMATION
  Report Type: Spontaneous
  Country: EG (occurrence: EG)
  Receive Date: 20170405
  Receipt Date: 20170405
  Transmission Date: 20170830
  Serious: Yes (Other)
  Sender: FDA-Public Use
  Company Number: EG-GILEAD-2017-0265642

PATIENT
  Sex: Female

DRUGS (1)
  1. HARVONI [Suspect]
     Active Substance: LEDIPASVIR\SOFOSBUVIR
     Indication: HEPATITIS C
     Route: 048

REACTIONS (7)
  - Mesenteric vein thrombosis [Unknown]
  - Ascites [Unknown]
  - Nephrolithiasis [Unknown]
  - Splenomegaly [Unknown]
  - Portal hypertension [Unknown]
  - Benign soft tissue neoplasm [Unknown]
  - Aortic arteriosclerosis [Unknown]

NARRATIVE: CASE EVENT DATE: 20170328
